FAERS Safety Report 9037827 (Version 1)
Quarter: 2013Q1

REPORT INFORMATION
  Report Type: Spontaneous
  Country: US (occurrence: US)
  Receive Date: 20130129
  Receipt Date: 20130129
  Transmission Date: 20140127
  Serious: Yes (Hospitalization, Other)
  Sender: FDA-Public Use
  Company Number: US-BRISTOL-MYERS SQUIBB COMPANY-17315037

PATIENT
  Age: 65 Year
  Sex: Female
  Weight: 81.63 kg

DRUGS (7)
  1. ABATACEPT SUBQ INJECTION 125MG/ML [Suspect]
     Indication: RHEUMATOID ARTHRITIS
     Route: 058
     Dates: start: 201107
  2. PREDNISONE [Concomitant]
  3. QUINAPRIL [Concomitant]
  4. LASIX [Concomitant]
  5. PROMETHAZINE [Concomitant]
  6. METHADONE [Concomitant]
  7. TIZANIDINE [Concomitant]

REACTIONS (3)
  - Cardiac failure congestive [Not Recovered/Not Resolved]
  - Pneumonia [Not Recovered/Not Resolved]
  - Thyroid disorder [Not Recovered/Not Resolved]
